FAERS Safety Report 6331615-1 (Version None)
Quarter: 2009Q3

REPORT INFORMATION
  Report Type: 
  Country: None (occurrence: None)
  Receive Date: 20090827
  Receipt Date: 20090820
  Transmission Date: 20100115
  Serious: Yes (Hospitalization)
  Sender: FDA-Public Use
  Company Number: PHHY2009JP33160

PATIENT
  Age: 78 Year
  Sex: Male

DRUGS (4)
  1. DIOVAN [Suspect]
     Indication: HYPERTENSION
     Dosage: 80 MG, QD
     Route: 048
     Dates: end: 20090803
  2. ARICEPT [Concomitant]
     Dosage: UNK
  3. GASTER [Concomitant]
     Dosage: UNK
  4. SERMION [Concomitant]
     Dosage: UNK

REACTIONS (2)
  - CEREBRAL ISCHAEMIA [None]
  - LIP OEDEMA [None]
